FAERS Safety Report 10079411 (Version 1)
Quarter: 2014Q2

REPORT INFORMATION
  Report Type: Spontaneous
  Country: US (occurrence: None)
  Receive Date: 20140414
  Receipt Date: 20140414
  Transmission Date: 20141212
  Serious: Yes (Hospitalization)
  Sender: FDA-Public Use
  Company Number: None

PATIENT
  Age: 65 Year
  Sex: Male
  Weight: 73.48 kg

DRUGS (1)
  1. LIVALO [Suspect]
     Dosage: 1 DAILY

REACTIONS (9)
  - Asthenia [None]
  - Paraesthesia [None]
  - Hypoaesthesia [None]
  - Intervertebral disc protrusion [None]
  - Guillain-Barre syndrome [None]
  - Chronic inflammatory demyelinating polyradiculoneuropathy [None]
  - Hypoaesthesia [None]
  - Areflexia [None]
  - Abasia [None]
